FAERS Safety Report 4784851-X (Version None)
Quarter: 2005Q3

REPORT INFORMATION
  Report Type: 
  Country: None (occurrence: None)
  Receive Date: 20050930
  Receipt Date: 20050824
  Transmission Date: 20060218
  Serious: Yes (Hospitalization, Other)
  Sender: FDA-Public Use
  Company Number: PHBS2005JP12350

PATIENT
  Age: 80 Year
  Sex: Female

DRUGS (14)
  1. TEGRETOL [Suspect]
     Indication: EPILEPSY
     Dosage: 200 MG/DAY
     Route: 048
     Dates: start: 20050620, end: 20050804
  2. MYSLEE [Suspect]
     Indication: INSOMNIA
     Dosage: 5 MG/DAY
     Route: 048
     Dates: start: 20050617, end: 20050803
  3. TRYPTANOL [Suspect]
     Indication: NOCTURIA
     Dosage: 10 MG/DAY
     Route: 048
     Dates: start: 20050801, end: 20050803
  4. RENIVACE [Suspect]
     Dosage: 5 MG/DAY
     Route: 048
     Dates: start: 20050620, end: 20050806
  5. GASTER [Suspect]
     Dosage: 20 MG/DAY
     Route: 048
     Dates: start: 20050620, end: 20050802
  6. TANATRIL [Concomitant]
     Dosage: 5 MG/DAY
     Route: 048
     Dates: end: 20050619
  7. NORVASC [Concomitant]
     Dosage: 5 MG/DAY
     Route: 048
     Dates: end: 20050619
  8. ATEMINON [Concomitant]
     Dosage: 300 MG/DAY
     Route: 048
     Dates: end: 20050619
  9. MAGMITT [Concomitant]
     Indication: CONSTIPATION
     Dosage: 1000 MG/DAY
     Route: 048
     Dates: start: 20050617
  10. PURSENNID [Concomitant]
     Indication: CONSTIPATION
     Dosage: 1 DF/DAY
     Route: 048
     Dates: start: 20050617
  11. AMLODIPINE BESYLATE [Concomitant]
     Dosage: 5 MG/DAY
     Route: 048
     Dates: start: 20050620
  12. CLARITIN [Concomitant]
     Indication: PRURITUS
     Dosage: 1 DF/DAY
     Route: 048
     Dates: start: 20050801
  13. CEFZON [Concomitant]
     Indication: URINARY TRACT INFECTION
     Dosage: 3 DF/DAY
     Route: 048
     Dates: start: 20050803
  14. BIKLIN [Concomitant]
     Indication: URINARY TRACT INFECTION
     Dates: start: 20050803

REACTIONS (12)
  - AGRANULOCYTOSIS [None]
  - BASOPHIL COUNT DECREASED [None]
  - C-REACTIVE PROTEIN INCREASED [None]
  - DYSURIA [None]
  - EOSINOPHIL COUNT DECREASED [None]
  - GAMMA-GLUTAMYLTRANSFERASE INCREASED [None]
  - LYMPHOCYTE COUNT INCREASED [None]
  - MONOCYTE COUNT DECREASED [None]
  - NEUTROPHIL COUNT DECREASED [None]
  - PYREXIA [None]
  - URINARY TRACT INFECTION [None]
  - WHITE BLOOD CELL COUNT DECREASED [None]
